FAERS Safety Report 12538184 (Version 2)
Quarter: 2016Q3

REPORT INFORMATION
  Report Type: Report from Study
  Country: US (occurrence: US)
  Receive Date: 20160707
  Receipt Date: 20160822
  Transmission Date: 20161109
  Serious: Yes (Death, Hospitalization)
  Sender: FDA-Public Use
  Company Number: US-ACTELION-A-NJ2013-88430

PATIENT
  Age: 75 Year
  Sex: Female

DRUGS (15)
  1. PROTONIX [Concomitant]
     Active Substance: PANTOPRAZOLE SODIUM
  2. ATORVASTATIN [Concomitant]
     Active Substance: ATORVASTATIN
  3. ZYRTEC [Concomitant]
     Active Substance: CETIRIZINE HYDROCHLORIDE
  4. TYVASO [Concomitant]
     Active Substance: TREPROSTINIL
     Dosage: 9 PUFF, QID
  5. XARELTO [Concomitant]
     Active Substance: RIVAROXABAN
  6. AMIODARONE [Concomitant]
     Active Substance: AMIODARONE
     Dosage: 200 MG, QD
  7. TRACLEER [Suspect]
     Active Substance: BOSENTAN
     Indication: PULMONARY ARTERIAL HYPERTENSION
     Dosage: 125 MG, BID
     Route: 048
     Dates: start: 20130128, end: 20160626
  8. OXYBUTYNIN [Concomitant]
     Active Substance: OXYBUTYNIN
     Dosage: 10 MG, QD
  9. PAXIL [Concomitant]
     Active Substance: PAROXETINE HYDROCHLORIDE
  10. TRACLEER [Suspect]
     Active Substance: BOSENTAN
     Dosage: 62.5 MG, BID
     Route: 048
     Dates: start: 20130201, end: 20130328
  11. SPIRONOLACTONE. [Concomitant]
     Active Substance: SPIRONOLACTONE
     Dosage: 50 MG, UNK
  12. FUROSEMIDE. [Concomitant]
     Active Substance: FUROSEMIDE
     Dosage: UNK
  13. DITROPAN [Concomitant]
     Active Substance: OXYBUTYNIN CHLORIDE
  14. SYNTHROID [Concomitant]
     Active Substance: LEVOTHYROXINE SODIUM
  15. PAROXETINE. [Concomitant]
     Active Substance: PAROXETINE
     Dosage: 20 MG, UNK

REACTIONS (6)
  - Cardiac failure congestive [Unknown]
  - Fluid overload [Unknown]
  - Acute respiratory failure [Recovered/Resolved]
  - Drug dose omission [Unknown]
  - Dyspnoea [Recovering/Resolving]
  - Death [Fatal]

NARRATIVE: CASE EVENT DATE: 20151106
